FAERS Safety Report 23867965 (Version 2)
Quarter: 2024Q2

REPORT INFORMATION
  Report Type: Spontaneous
  Country: US (occurrence: None)
  Receive Date: 20240517
  Receipt Date: 20240621
  Transmission Date: 20240715
  Serious: Yes (Other)
  Sender: FDA-Public Use
  Company Number: US-NATCOUSA-2024-NATCOUSA-000203

PATIENT
  Age: 66 Year
  Sex: Female
  Weight: 74.84 kg

DRUGS (9)
  1. LETROZOLE [Suspect]
     Active Substance: LETROZOLE
     Indication: Breast cancer
     Dates: start: 202306
  2. ATORVASTATIN [Concomitant]
     Active Substance: ATORVASTATIN
     Dosage: 40 MG MONDAY TO THURSDAY
  3. VITAMINS [Concomitant]
     Active Substance: VITAMINS
     Dosage: 5000 IU
  4. MAGNESIUM OXIDE [Concomitant]
     Active Substance: MAGNESIUM OXIDE
     Dosage: 400 MG
  5. ASPIRIN [Concomitant]
     Active Substance: ASPIRIN
     Dosage: 81
  6. CALCIUM [Concomitant]
     Active Substance: CALCIUM
  7. TUMS [Concomitant]
     Active Substance: CALCIUM CARBONATE
     Indication: Gastrooesophageal reflux disease
  8. LETROZOLE [Suspect]
     Active Substance: LETROZOLE
     Indication: Oestrogen therapy
     Dates: start: 202402, end: 20240422
  9. LETROZOLE [Suspect]
     Active Substance: LETROZOLE
     Indication: Oestrogen therapy
     Dates: start: 202312

REACTIONS (5)
  - Throat irritation [Recovering/Resolving]
  - Dysphonia [Recovering/Resolving]
  - Incontinence [Unknown]
  - Colitis [Unknown]
  - Cataract [Unknown]

NARRATIVE: CASE EVENT DATE: 20240506
